FAERS Safety Report 9349776 (Version 1)
Quarter: 2013Q2

REPORT INFORMATION
  Report Type: Spontaneous
  Country: PH (occurrence: PH)
  Receive Date: 20130614
  Receipt Date: 20130614
  Transmission Date: 20140414
  Serious: Yes (Death, Hospitalization, Other)
  Sender: FDA-Public Use
  Company Number: PH-BAXTER-2013BAX021926

PATIENT
  Age: 13 Year
  Sex: Female

DRUGS (2)
  1. DIANEAL PD2 WITH 2.5% DEXTROSE [Suspect]
     Indication: PERITONEAL DIALYSIS
     Route: 033
     Dates: start: 20130606, end: 20130607
  2. DIANEAL PD2 WITH 4.25% DEXTROSE [Suspect]
     Indication: PERITONEAL DIALYSIS
     Route: 033
     Dates: start: 20130606, end: 20130607

REACTIONS (8)
  - Cardiac arrest [Fatal]
  - Myocarditis [Fatal]
  - Disseminated intravascular coagulation [Fatal]
  - Pleural effusion [Fatal]
  - Renal failure acute [Fatal]
  - Dengue fever [Unknown]
  - Blood pressure fluctuation [Unknown]
  - Ventricular hypokinesia [Unknown]
